FAERS Safety Report 15935241 (Version 2)
Quarter: 2019Q1

REPORT INFORMATION
  Report Type: Spontaneous
  Country: PL (occurrence: PL)
  Receive Date: 20190207
  Receipt Date: 20190226
  Transmission Date: 20190417
  Serious: Yes (Other)
  Sender: FDA-Public Use
  Company Number: PL-BAXTER-2019BAX002491

PATIENT
  Sex: Female

DRUGS (25)
  1. ENDOXAN [Suspect]
     Active Substance: CYCLOPHOSPHAMIDE
     Indication: BREAST CANCER METASTATIC
  2. CAPECITABINE. [Suspect]
     Active Substance: CAPECITABINE
     Indication: METASTASES TO SKIN
     Dosage: ON DAYS 1-14; EVERY 3 WEEKS
     Route: 048
  3. PACLITAXEL. [Suspect]
     Active Substance: PACLITAXEL
     Indication: METASTASES TO SKIN
     Route: 065
  4. DOXORUBICIN [Suspect]
     Active Substance: DOXORUBICIN
     Indication: METASTASES TO SKIN
     Dosage: 4 CYCLES OF PALLIATIVE CHEMOTHERAPY; EVERY 3 WEEKS
     Route: 065
  5. ENDOXAN [Suspect]
     Active Substance: CYCLOPHOSPHAMIDE
     Indication: BREAST CANCER METASTATIC
     Dosage: METRONOMIC CHEMOTHERAPY
     Route: 065
  6. DOXORUBICIN [Suspect]
     Active Substance: DOXORUBICIN
     Indication: BREAST CANCER FEMALE
     Dosage: PERIOPERATIVE CHEMOTHERAPY
     Route: 065
  7. DOXORUBICIN [Suspect]
     Active Substance: DOXORUBICIN
     Indication: BREAST CANCER METASTATIC
  8. LETROZOLE. [Suspect]
     Active Substance: LETROZOLE
     Indication: BREAST CANCER FEMALE
     Dosage: AFTER THE OPERATION; HORMONE THERAPY
     Route: 065
  9. LETROZOLE. [Suspect]
     Active Substance: LETROZOLE
     Indication: HORMONE THERAPY
  10. EXEMESTANE. [Suspect]
     Active Substance: EXEMESTANE
     Indication: METASTASES TO SKIN
     Route: 065
  11. METHOTREXATE. [Suspect]
     Active Substance: METHOTREXATE
     Indication: METASTASES TO SKIN
     Route: 065
  12. METHOTREXATE. [Suspect]
     Active Substance: METHOTREXATE
     Indication: BREAST CANCER METASTATIC
  13. CAPECITABINE. [Suspect]
     Active Substance: CAPECITABINE
     Indication: BREAST CANCER METASTATIC
     Dosage: METRONOMIC THERAPY
     Route: 048
  14. VINORELBINE [Suspect]
     Active Substance: VINORELBINE\VINORELBINE TARTRATE
     Indication: METASTASES TO SKIN
     Dosage: ON DAYS 1 AND 8 IN CYCLES; EVERY 3 WEEKS
     Route: 048
  15. BLEOMYCIN [Suspect]
     Active Substance: BLEOMYCIN SULFATE
     Indication: BREAST CANCER METASTATIC
  16. ENDOXAN [Suspect]
     Active Substance: CYCLOPHOSPHAMIDE
     Indication: METASTASES TO SKIN
     Dosage: 4 CYCLES OF PALLIATIVE CHEMOTHERAPY, EVERY 3 WEEKS
     Route: 065
  17. ENDOXAN [Suspect]
     Active Substance: CYCLOPHOSPHAMIDE
     Indication: METASTASES TO SKIN
     Dosage: ORAL METRONOMIC THERAPY BASED ON THE VEX REGIMEN; CONTINUOUS DOSING
     Route: 048
  18. FULVESTRANT. [Suspect]
     Active Substance: FULVESTRANT
     Indication: BREAST CANCER METASTATIC
  19. PACLITAXEL. [Suspect]
     Active Substance: PACLITAXEL
     Indication: BREAST CANCER METASTATIC
  20. DOCETAXEL. [Suspect]
     Active Substance: DOCETAXEL
     Indication: BREAST CANCER FEMALE
     Dosage: PERIOPERATIVE CHEMOTHERAPY
     Route: 065
  21. EXEMESTANE. [Suspect]
     Active Substance: EXEMESTANE
     Indication: BREAST CANCER METASTATIC
  22. VINORELBINE [Suspect]
     Active Substance: VINORELBINE\VINORELBINE TARTRATE
     Indication: BREAST CANCER METASTATIC
     Route: 048
  23. FULVESTRANT. [Suspect]
     Active Substance: FULVESTRANT
     Indication: METASTASES TO SKIN
     Dosage: MONTHLY
     Route: 065
  24. FULVESTRANT. [Suspect]
     Active Substance: FULVESTRANT
     Indication: HORMONE THERAPY
  25. BLEOMYCIN [Suspect]
     Active Substance: BLEOMYCIN SULFATE
     Indication: METASTASES TO SKIN
     Dosage: THE THERAPY WAS DIVIDED INTO 3 STAGES WITH A TOTAL DURATION OF 3 MONTHS
     Route: 042

REACTIONS (3)
  - Disease progression [Not Recovered/Not Resolved]
  - Skin lesion [Not Recovered/Not Resolved]
  - Infection [Unknown]
